FAERS Safety Report 7404498-6 (Version None)
Quarter: 2011Q2

REPORT INFORMATION
  Report Type: 
  Country: None (occurrence: None)
  Receive Date: 20110408
  Receipt Date: 20110406
  Transmission Date: 20111010
  Serious: Yes (Hospitalization, Other)
  Sender: FDA-Public Use
  Company Number: JP-PFIZER INC-2011044810

PATIENT
  Age: 79 Year
  Sex: Female
  Weight: 45 kg

DRUGS (3)
  1. WARFARIN [Concomitant]
     Dosage: 1 MG, 3X/DAY
  2. LYRICA [Suspect]
     Indication: SPINAL COLUMN STENOSIS
     Dosage: 75 MG, 2X/DAY
     Route: 048
     Dates: start: 20101122, end: 20101231
  3. SUNRYTHM [Concomitant]
     Dosage: UNK

REACTIONS (2)
  - FALL [None]
  - LOSS OF CONSCIOUSNESS [None]
